FAERS Safety Report 8561267-1 (Version None)
Quarter: 2012Q3

REPORT INFORMATION
  Report Type: 
  Country: None (occurrence: None)
  Receive Date: 20120802
  Receipt Date: 20120727
  Transmission Date: 20120928
  Serious: Yes (Death)
  Sender: FDA-Public Use
  Company Number: MX-UCBSA-062736

PATIENT
  Age: 91 Year
  Sex: Female
  Weight: 60 kg

DRUGS (3)
  1. NUBRENZA [Suspect]
     Indication: PARKINSON'S DISEASE
     Route: 062
     Dates: start: 20120626, end: 20120720
  2. LEVODOPA [Concomitant]
     Indication: PARKINSON'S DISEASE
     Route: 048
     Dates: start: 20080101
  3. MICARDIS HCT [Concomitant]
     Indication: HYPERTENSION
     Dosage: 80/25 MG
     Route: 048
     Dates: start: 20040101

REACTIONS (5)
  - HYPERHIDROSIS [None]
  - ANXIETY [None]
  - APNOEA [None]
  - MYOCARDIAL INFARCTION [None]
  - CHEST PAIN [None]
